FAERS Safety Report 7570876-8 (Version None)
Quarter: 2011Q2

REPORT INFORMATION
  Report Type: 
  Country: None (occurrence: None)
  Receive Date: 20110622
  Receipt Date: 20110622
  Transmission Date: 20111010
  Serious: Yes (Other)
  Sender: FDA-Public Use
  Company Number: None

PATIENT
  Age: 71 Year
  Sex: Female
  Weight: 83.9154 kg

DRUGS (1)
  1. RECLAST [Suspect]

REACTIONS (6)
  - MYALGIA [None]
  - PAIN OF SKIN [None]
  - MOVEMENT DISORDER [None]
  - INFLUENZA LIKE ILLNESS [None]
  - PYREXIA [None]
  - NECK PAIN [None]
